FAERS Safety Report 20346272 (Version 1)
Quarter: 2022Q1

REPORT INFORMATION
  Report Type: Spontaneous
  Country: US (occurrence: None)
  Receive Date: 20220117
  Receipt Date: 20220117
  Transmission Date: 20220424
  Serious: Yes (Hospitalization)
  Sender: FDA-Public Use
  Company Number: None

PATIENT
  Sex: Female

DRUGS (21)
  1. ORENCIA [Suspect]
     Active Substance: ABATACEPT
  2. ATORVASTATIN [Concomitant]
     Active Substance: ATORVASTATIN
  3. BENAZEPRIL TAB [Concomitant]
  4. CYCLOBENZAPRINE HYDROCHLORIDE [Concomitant]
     Active Substance: CYCLOBENZAPRINE HYDROCHLORIDE
  5. DULOXETINE HYDROCHLORIDE [Concomitant]
     Active Substance: DULOXETINE HYDROCHLORIDE
  6. FOLIC ACID [Concomitant]
     Active Substance: FOLIC ACID
  7. ESTRADIOL [Concomitant]
     Active Substance: ESTRADIOL
  8. FUROSEMID TAB [Concomitant]
  9. HUMIRA [Concomitant]
     Active Substance: ADALIMUMAB
  10. HYDROCHLOROT TAB [Concomitant]
  11. HYDROCO/APAP TAB [Concomitant]
  12. METFORMIN TAB [Concomitant]
  13. METHOCARBAM TAB [Concomitant]
  14. MOMETASONE CRE [Concomitant]
  15. MONTELUKAST SODIUM [Concomitant]
     Active Substance: MONTELUKAST SODIUM
  16. NABUMETONE TAB [Concomitant]
  17. NORVASC TAB [Concomitant]
  18. OLOPATADINE SOL [Concomitant]
  19. POT CHLORIDE TAB [Concomitant]
  20. PREGABALIN [Concomitant]
     Active Substance: PREGABALIN
  21. TEMAZEPAM [Concomitant]
     Active Substance: TEMAZEPAM

REACTIONS (1)
  - Therapy non-responder [None]
